FAERS Safety Report 14252834 (Version 1)
Quarter: 2017Q4

REPORT INFORMATION
  Report Type: Other
  Country: AU (occurrence: AU)
  Receive Date: 20171206
  Receipt Date: 20171206
  Transmission Date: 20180321
  Serious: Yes (Hospitalization)
  Sender: FDA-Public Use
  Company Number: AU-ATLAS PHARMACEUTICALS, LLC-2036786

PATIENT

DRUGS (7)
  1. EZETIMIBE. [Suspect]
     Active Substance: EZETIMIBE
     Route: 065
  2. METFORMIN [Suspect]
     Active Substance: METFORMIN HYDROCHLORIDE
     Indication: PRODUCT USED FOR UNKNOWN INDICATION
  3. ACETAMINOPHEN AND CODEINE [Suspect]
     Active Substance: ACETAMINOPHEN\CODEINE PHOSPHATE
     Route: 065
  4. SIMVASTATIN. [Suspect]
     Active Substance: SIMVASTATIN
     Route: 065
  5. AMOXICILLIN AND CLAVULANATE POTASSIUM [Suspect]
     Active Substance: AMOXICILLIN\CLAVULANATE POTASSIUM
     Route: 065
  6. ROXITHROMYCIN [Suspect]
     Active Substance: ROXITHROMYCIN
     Route: 065
  7. ALLOPURINOL. [Suspect]
     Active Substance: ALLOPURINOL
     Route: 065

REACTIONS (1)
  - Drug-induced liver injury [Unknown]
